FAERS Safety Report 5920492-6 (Version None)
Quarter: 2008Q4

REPORT INFORMATION
  Report Type: 
  Country: None (occurrence: None)
  Receive Date: 20081016
  Receipt Date: 20081014
  Transmission Date: 20090506
  Serious: Yes (Other)
  Sender: FDA-Public Use
  Company Number: A0752226A

PATIENT
  Age: 56 Year
  Sex: Female
  Weight: 60 kg

DRUGS (5)
  1. LEUKERAN [Suspect]
     Dosage: 2TAB CYCLIC
     Route: 048
     Dates: start: 20050101
  2. RIVOTRIL [Concomitant]
     Dates: start: 20071010
  3. AMITRIPTYLINE HCL [Concomitant]
     Dates: start: 19990101
  4. DOMPERIDONE [Concomitant]
     Dates: start: 20080910
  5. PLASIL [Concomitant]
     Dates: start: 20080917, end: 20080922

REACTIONS (5)
  - ABDOMINAL DISTENSION [None]
  - ANOREXIA [None]
  - DEPRESSION [None]
  - SPLENOMEGALY [None]
  - VOMITING [None]
